FAERS Safety Report 9779864 (Version 2)
Quarter: 2014Q1

REPORT INFORMATION
  Report Type: Spontaneous
  Country: US (occurrence: US)
  Receive Date: 20131223
  Receipt Date: 20140214
  Transmission Date: 20141002
  Serious: Yes (Hospitalization)
  Sender: FDA-Public Use
  Company Number: US-B.I. PHARMACEUTICALS,INC./RIDGEFIELD-2013-BI-42754BP

PATIENT
  Age: 79 Year
  Sex: Female
  Weight: 55 kg

DRUGS (3)
  1. PRADAXA [Suspect]
     Indication: ATRIAL FIBRILLATION
     Dosage: 300 MG
     Route: 048
     Dates: start: 2011, end: 20131201
  2. DILTIAZEM [Concomitant]
     Indication: HEART RATE INCREASED
     Route: 048
  3. DILTIAZEM [Concomitant]
     Indication: DYSPNOEA
     Route: 048

REACTIONS (2)
  - Heart rate abnormal [Not Recovered/Not Resolved]
  - Atrial flutter [Recovered/Resolved]
